FAERS Safety Report 5672618-X (Version None)
Quarter: 2008Q1

REPORT INFORMATION
  Report Type: 
  Country: None (occurrence: None)
  Receive Date: 20080319
  Receipt Date: 20080313
  Transmission Date: 20080703
  Serious: No
  Sender: FDA-Public Use
  Company Number: JP-MERCK-0802USA03113

PATIENT
  Age: 47 Year
  Sex: Male

DRUGS (7)
  1. ZETIA [Suspect]
     Indication: HYPERLIPIDAEMIA
     Route: 048
     Dates: start: 20071001, end: 20080204
  2. ZETIA [Suspect]
     Route: 048
  3. NIFEDIPINE [Concomitant]
     Route: 065
  4. CANDESARTAN CILEXETIL [Concomitant]
     Route: 065
  5. SODIUM CITRATE [Concomitant]
     Route: 065
  6. POTASSIUM CITRATE [Concomitant]
     Route: 065
  7. PROBENECID [Concomitant]
     Route: 065

REACTIONS (3)
  - BLOOD CREATINE PHOSPHOKINASE INCREASED [None]
  - INTESTINAL ISCHAEMIA [None]
  - SMALL INTESTINAL HAEMORRHAGE [None]
